FAERS Safety Report 8547271-8 (Version None)
Quarter: 2012Q3

REPORT INFORMATION
  Report Type: 
  Country: None (occurrence: None)
  Receive Date: 20120727
  Receipt Date: 20120723
  Transmission Date: 20120928
  Serious: Yes (Death, Hospitalization)
  Sender: FDA-Public Use
  Company Number: US-009507513-1207USA009526

PATIENT

DRUGS (3)
  1. ETOPOSIDE [Concomitant]
     Indication: GLIOBLASTOMA MULTIFORME
  2. DEXAMETHASONE [Suspect]
     Indication: BRAIN OEDEMA
     Dosage: 4 MG, BID
     Route: 048
  3. BEVACIZUMAB [Suspect]
     Indication: GLIOBLASTOMA MULTIFORME

REACTIONS (1)
  - SKIN STRIAE [None]
